FAERS Safety Report 23529500 (Version 1)
Quarter: 2024Q1

REPORT INFORMATION
  Report Type: Spontaneous
  Country: CN (occurrence: None)
  Receive Date: 20240216
  Receipt Date: 20240216
  Transmission Date: 20240410
  Serious: Yes (Hospitalization)
  Sender: FDA-Public Use
  Company Number: 2024A036169

PATIENT
  Age: 24020 Day
  Sex: Female
  Weight: 56 kg

DRUGS (4)
  1. METFORMIN HYDROCHLORIDE\SAXAGLIPTIN [Suspect]
     Active Substance: METFORMIN HYDROCHLORIDE\SAXAGLIPTIN
     Indication: Type 2 diabetes mellitus
     Route: 048
     Dates: start: 20240129, end: 20240201
  2. METFORMIN HYDROCHLORIDE\SAXAGLIPTIN [Suspect]
     Active Substance: METFORMIN HYDROCHLORIDE\SAXAGLIPTIN
     Indication: Blood glucose
     Route: 048
     Dates: start: 20240129, end: 20240201
  3. ACARBOSE [Suspect]
     Active Substance: ACARBOSE
     Indication: Type 2 diabetes mellitus
     Route: 048
     Dates: start: 20240129, end: 20240201
  4. ACARBOSE [Suspect]
     Active Substance: ACARBOSE
     Indication: Blood glucose
     Route: 048
     Dates: start: 20240129, end: 20240201

REACTIONS (2)
  - Hypoglycaemia [Recovering/Resolving]
  - Abdominal distension [Recovering/Resolving]

NARRATIVE: CASE EVENT DATE: 20240129
